FAERS Safety Report 5410742-7 (Version None)
Quarter: 2007Q3

REPORT INFORMATION
  Report Type: 
  Country: None (occurrence: None)
  Receive Date: 20070810
  Receipt Date: 20070206
  Transmission Date: 20080115
  Serious: No
  Sender: FDA-Public Use
  Company Number: A0638588A

PATIENT
  Sex: Male

DRUGS (1)
  1. PAROXETINE [Suspect]
     Indication: ANXIETY DISORDER
     Dosage: 60MG TWICE PER DAY
     Route: 048
     Dates: start: 20030801

REACTIONS (5)
  - DIZZINESS [None]
  - FATIGUE [None]
  - FEELING DRUNK [None]
  - HEADACHE [None]
  - MUSCLE TWITCHING [None]
